FAERS Safety Report 6531240-3 (Version None)
Quarter: 2010Q1

REPORT INFORMATION
  Report Type: 
  Country: None (occurrence: None)
  Receive Date: 20100108
  Receipt Date: 20100108
  Transmission Date: 20100710
  Serious: Yes (Hospitalization)
  Sender: FDA-Public Use
  Company Number: PHHO2007MY08208

PATIENT
  Sex: Male

DRUGS (5)
  1. LDT600 LDT+TAB [Suspect]
     Indication: HEPATITIS B
     Dosage: 600 MG, QD
     Route: 048
     Dates: start: 20060111
  2. LACTULOSE [Concomitant]
     Indication: LAXATIVE SUPPORTIVE CARE
     Dates: start: 20050912
  3. LANSOPRAZOLE [Concomitant]
     Dates: start: 20060210
  4. BETAMETHASONE [Concomitant]
     Indication: PRURITUS
     Dates: start: 20061017
  5. CHLORPHENIRAMINE [Concomitant]
     Indication: PRURITUS
     Dates: start: 20061212

REACTIONS (3)
  - ASCITES [None]
  - PENILE SWELLING [None]
  - WEIGHT INCREASED [None]
